FAERS Safety Report 13181325 (Version 5)
Quarter: 2017Q3

REPORT INFORMATION
  Report Type: Report from Study
  Country: AT (occurrence: AT)
  Receive Date: 20170202
  Receipt Date: 20170727
  Transmission Date: 20171127
  Serious: Yes (Hospitalization)
  Sender: FDA-Public Use
  Company Number: AT-ALLERGAN-1703919US

PATIENT
  Age: 52 Year
  Sex: Female
  Weight: 57.7 kg

DRUGS (10)
  1. SERTRALIN/SERTRALIN [Concomitant]
     Indication: PRODUCT USED FOR UNKNOWN INDICATION
     Route: 065
  2. TRITTICO/TRAZODON-HYDROCHLORIDE [Concomitant]
     Indication: PRODUCT USED FOR UNKNOWN INDICATION
     Route: 065
     Dates: start: 201509
  3. MEFENABENE/MEFENAMIC ACID [Concomitant]
     Indication: PRODUCT USED FOR UNKNOWN INDICATION
     Route: 065
  4. ESCITALOPRAM OXALATE UNK [Suspect]
     Active Substance: ESCITALOPRAM OXALATE
     Indication: ADJUSTMENT DISORDER WITH DEPRESSED MOOD
     Dosage: 10 MG, QD
     Route: 048
     Dates: start: 20150107, end: 20150118
  5. TRITTICO/TRAZODON-HYDROCHLORIDE [Concomitant]
     Dosage: 100 MG, QD
     Route: 065
  6. SERTRALIN/SERTRALIN [Concomitant]
     Route: 065
  7. SERTRALIN/SERTRALIN [Concomitant]
     Route: 065
  8. TRITTICO/TRAZODON-HYDROCHLORIDE [Concomitant]
     Dosage: 150 MG, QD
     Route: 065
  9. PANTOPRAZOL/PANTOPRAZOL [Concomitant]
     Indication: PRODUCT USED FOR UNKNOWN INDICATION
     Route: 065
  10. MEFENABENE/MEFENAMIC ACID [Concomitant]
     Route: 065

REACTIONS (2)
  - Off label use [Unknown]
  - Alopecia [Recovering/Resolving]

NARRATIVE: CASE EVENT DATE: 20150116
